FAERS Safety Report 5316845-X (Version None)
Quarter: 2007Q2

REPORT INFORMATION
  Report Type: 
  Country: None (occurrence: None)
  Receive Date: 20070501
  Receipt Date: 20070501
  Transmission Date: 20071010
  Serious: Yes (Death)
  Sender: FDA-Public Use
  Company Number: None

PATIENT
  Age: 70 Year
  Sex: Male
  Weight: 63.05 kg

DRUGS (2)
  1. METOPROLOL SUCCINATE [Suspect]
     Indication: CORONARY ARTERY DISEASE
     Dosage: 100 MG DAILY ORAL
     Route: 048
  2. CARVEDILOL [Suspect]
     Indication: ISCHAEMIC CARDIOMYOPATHY
     Dosage: 6.25 MG BID ORAL
     Route: 048

REACTIONS (4)
  - CELLULITIS [None]
  - GANGRENE [None]
  - OSTEOMYELITIS [None]
  - PERIPHERAL ISCHAEMIA [None]
